FAERS Safety Report 8225537-9 (Version None)
Quarter: 2012Q1

REPORT INFORMATION
  Report Type: 
  Country: None (occurrence: None)
  Receive Date: 20120321
  Receipt Date: 20120314
  Transmission Date: 20120608
  Serious: Yes (Hospitalization)
  Sender: FDA-Public Use
  Company Number: US-ABBOTT-12P-163-0915647-00

PATIENT
  Sex: Female
  Weight: 44.855 kg

DRUGS (18)
  1. LISINOPRIL [Concomitant]
     Indication: HYPERTENSION
  2. FOLIC ACID [Concomitant]
     Indication: PRODUCT USED FOR UNKNOWN INDICATION
  3. L-CARNITINE [Concomitant]
     Indication: MITRAL VALVE PROLAPSE
  4. ASPIRIN [Concomitant]
     Indication: FATIGUE
  5. PHENOBARBITAL TAB [Concomitant]
     Indication: CONVULSION
  6. IMURAN [Concomitant]
     Indication: RHEUMATOID ARTHRITIS
  7. CALCIUM WITH MAGNESIUM AND VITAMIN D [Concomitant]
     Indication: OSTEOPOROSIS
  8. PROBIOTICS [Concomitant]
     Indication: IRRITABLE BOWEL SYNDROME
  9. VITAMIN B-12 [Concomitant]
     Indication: VITAMIN B12 DECREASED
  10. HYALURONIC ACID [Concomitant]
     Indication: ARTHROPATHY
  11. FLAXSEED OIL [Concomitant]
     Indication: CEREBRAL DISORDER
  12. PROBIOTICS [Concomitant]
     Indication: GASTROOESOPHAGEAL REFLUX DISEASE
  13. HUMIRA [Suspect]
     Indication: RHEUMATOID ARTHRITIS
     Dates: start: 20030101
  14. MULTI-VITAMIN [Concomitant]
     Indication: PRODUCT USED FOR UNKNOWN INDICATION
  15. GLUCOSOMINE CONDROITIN [Concomitant]
     Indication: ARTHROPATHY
  16. ASCORBIC ACID [Concomitant]
     Indication: PRODUCT USED FOR UNKNOWN INDICATION
  17. AMLODIPINE [Concomitant]
     Indication: HYPERTENSION
  18. MAGNESIUM [Concomitant]
     Indication: RESTLESS LEGS SYNDROME

REACTIONS (3)
  - RHEUMATOID ARTHRITIS [None]
  - LIMB INJURY [None]
  - FRACTURE [None]
